FAERS Safety Report 8724484 (Version 2)
Quarter: 2013Q3

REPORT INFORMATION
  Report Type: Spontaneous
  Country: US (occurrence: US)
  Receive Date: 20120815
  Receipt Date: 20130927
  Transmission Date: 20140515
  Serious: Yes (Other)
  Sender: FDA-Public Use
  Company Number: US-BRISTOL-MYERS SQUIBB COMPANY-16684557

PATIENT
  Age: 48 Year
  Sex: Female

DRUGS (3)
  1. ONGLYZA TABS 5 MG [Suspect]
     Dates: start: 201202, end: 20120605
  2. METFORMIN [Concomitant]
  3. ACTOS [Concomitant]

REACTIONS (2)
  - Pancreatitis [Unknown]
  - Gastrointestinal disorder [Unknown]
